FAERS Safety Report 5866790-6 (Version None)
Quarter: 2008Q3

REPORT INFORMATION
  Report Type: 
  Country: None (occurrence: None)
  Receive Date: 20080902
  Receipt Date: 20080821
  Transmission Date: 20090109
  Serious: Yes (Hospitalization)
  Sender: FDA-Public Use
  Company Number: PHHO2006DE19288

PATIENT
  Sex: Male
  Weight: 94 kg

DRUGS (5)
  1. RAD 666 RAD+TAB+PTR [Suspect]
     Indication: LUNG TRANSPLANT
     Dosage: 1 MG DAILY
     Route: 048
     Dates: start: 20061011
  2. NEORAL [Suspect]
     Indication: LUNG TRANSPLANT
     Dosage: 65 MG DAILY
     Route: 048
     Dates: start: 20060910, end: 20061109
  3. MYCOPHENOLATE MOFETIL [Concomitant]
     Indication: LUNG TRANSPLANT
     Route: 048
     Dates: start: 20060910
  4. DECORTIN-H [Concomitant]
     Indication: LUNG TRANSPLANT
     Dosage: 6 MG DAILY
     Route: 048
     Dates: start: 20060910
  5. URBASON [Concomitant]
     Indication: LUNG TRANSPLANT

REACTIONS (5)
  - BRONCHOSTENOSIS [None]
  - COUGH [None]
  - DYSPNOEA [None]
  - PULMONARY FUNCTION TEST DECREASED [None]
  - TRANSPLANT REJECTION [None]
